FAERS Safety Report 4975391-3 (Version None)
Quarter: 2006Q2

REPORT INFORMATION
  Report Type: 
  Country: None (occurrence: None)
  Receive Date: 20060418
  Receipt Date: 20060413
  Transmission Date: 20061013
  Serious: Yes (Hospitalization)
  Sender: FDA-Public Use
  Company Number: US-MERCK-0604USA02186

PATIENT
  Age: 67 Year
  Sex: Female

DRUGS (2)
  1. FOSAMAX [Suspect]
     Indication: OSTEOPOROSIS
     Route: 048
     Dates: start: 19970401, end: 20041201
  2. FOSAMAX [Suspect]
     Route: 048
     Dates: start: 20050401

REACTIONS (4)
  - DIVERTICULITIS [None]
  - GASTRIC DISORDER [None]
  - PAIN IN JAW [None]
  - PARAESTHESIA [None]
